FAERS Safety Report 25503651 (Version 2)
Quarter: 2025Q3

REPORT INFORMATION
  Report Type: Report from Study
  Country: EU (occurrence: EU)
  Receive Date: 20250702
  Receipt Date: 20250730
  Transmission Date: 20251021
  Serious: Yes (Life-Threatening, Other)
  Sender: AUROBINDO
  Company Number: EU-ADIENNEP-2019AD000280

PATIENT
  Age: 6 Year
  Sex: Female

DRUGS (21)
  1. MELPHALAN [Suspect]
     Active Substance: MELPHALAN
     Indication: Allogenic stem cell transplantation
     Dosage: 70 MILLIGRAM/SQ. METER, ONCE A DAY (70 MG/M2 DAILY)
     Route: 065
  2. MELPHALAN [Suspect]
     Active Substance: MELPHALAN
     Indication: Neuroblastoma recurrent
  3. MELPHALAN [Suspect]
     Active Substance: MELPHALAN
     Indication: Metastasis
  4. THIOTEPA [Suspect]
     Active Substance: THIOTEPA
     Indication: Allogenic stem cell transplantation
     Route: 065
  5. THIOTEPA [Suspect]
     Active Substance: THIOTEPA
     Indication: Neuroblastoma recurrent
     Route: 065
  6. THIOTEPA [Suspect]
     Active Substance: THIOTEPA
     Indication: Metastasis
  7. TREOSULFAN [Suspect]
     Active Substance: TREOSULFAN
     Indication: Allogenic stem cell transplantation
     Route: 065
  8. TREOSULFAN [Suspect]
     Active Substance: TREOSULFAN
     Indication: Neuroblastoma recurrent
     Dosage: 10 GRAM PER SQUARE METRE, ONCE A DAY
     Route: 065
  9. TREOSULFAN [Suspect]
     Active Substance: TREOSULFAN
     Indication: Metastasis
  10. FLUDARABINE [Suspect]
     Active Substance: FLUDARABINE PHOSPHATE
     Indication: Allogenic stem cell transplantation
     Route: 065
  11. FLUDARABINE [Suspect]
     Active Substance: FLUDARABINE PHOSPHATE
     Indication: Neuroblastoma recurrent
  12. FLUDARABINE [Suspect]
     Active Substance: FLUDARABINE PHOSPHATE
     Indication: Metastasis
  13. LAPINE T-LYMPHOCYTE IMMUNE GLOBULIN [Suspect]
     Active Substance: LAPINE T-LYMPHOCYTE IMMUNE GLOBULIN
     Indication: Allogenic stem cell transplantation
     Route: 065
  14. LAPINE T-LYMPHOCYTE IMMUNE GLOBULIN [Suspect]
     Active Substance: LAPINE T-LYMPHOCYTE IMMUNE GLOBULIN
     Indication: Neuroblastoma recurrent
  15. LAPINE T-LYMPHOCYTE IMMUNE GLOBULIN [Suspect]
     Active Substance: LAPINE T-LYMPHOCYTE IMMUNE GLOBULIN
     Indication: Metastasis
  16. RITUXIMAB [Suspect]
     Active Substance: RITUXIMAB
     Indication: Neuroblastoma recurrent
     Route: 065
  17. RITUXIMAB [Suspect]
     Active Substance: RITUXIMAB
     Indication: Metastasis
  18. DINUTUXIMAB BETA [Suspect]
     Active Substance: DINUTUXIMAB BETA
     Indication: Neuroblastoma recurrent
     Route: 065
  19. DINUTUXIMAB BETA [Suspect]
     Active Substance: DINUTUXIMAB BETA
     Indication: Metastasis
  20. ISOTRETINOIN [Suspect]
     Active Substance: ISOTRETINOIN
     Indication: Neuroblastoma recurrent
     Dosage: 160 MILLIGRAM/SQ. METER, TWO TIMES A DAY (160 MG/M2, BID (DIVIDED INTO 2 EQUAL DOSES GIVEN ORALLY TW
     Route: 048
  21. ISOTRETINOIN [Suspect]
     Active Substance: ISOTRETINOIN
     Indication: Metastasis

REACTIONS (3)
  - Neutropenia [Unknown]
  - Leukopenia [Unknown]
  - Off label use [Unknown]
